FAERS Safety Report 14355616 (Version 1)
Quarter: 2018Q1

REPORT INFORMATION
  Report Type: Spontaneous
  Country: US (occurrence: US)
  Receive Date: 20180104
  Receipt Date: 20180104
  Transmission Date: 20180509
  Serious: Yes (Other)
  Sender: FDA-Public Use
  Company Number: None

PATIENT
  Age: 56 Year
  Sex: Female
  Weight: 46.8 kg

DRUGS (4)
  1. PROBIOTICS [Concomitant]
     Active Substance: PROBIOTICS NOS
  2. PANTAPROPAZOLE [Concomitant]
  3. CHOLESTYRAMINE POWDER [Concomitant]
     Active Substance: CHOLESTYRAMINE
  4. AZITHROMYCIN ANHYDROUS. [Suspect]
     Active Substance: AZITHROMYCIN ANHYDROUS
     Indication: UPPER RESPIRATORY TRACT INFECTION
     Dosage: ?          QUANTITY:5 TABLET(S);?
     Route: 048
     Dates: start: 20171220, end: 20171224

REACTIONS (10)
  - Pharyngeal oedema [None]
  - Hypersensitivity [None]
  - Dysphonia [None]
  - Gingival swelling [None]
  - Back pain [None]
  - Impaired work ability [None]
  - Mouth swelling [None]
  - Weight decreased [None]
  - Chronic obstructive pulmonary disease [None]
  - Dyspnoea [None]

NARRATIVE: CASE EVENT DATE: 20171223
